FAERS Safety Report 26065354 (Version 2)
Quarter: 2025Q4

REPORT INFORMATION
  Report Type: Spontaneous
  Country: EU (occurrence: EU)
  Receive Date: 20251119
  Receipt Date: 20251121
  Transmission Date: 20260118
  Serious: Yes (Other)
  Sender: PFIZER
  Company Number: None

PATIENT
  Age: 80 Year
  Sex: Female

DRUGS (5)
  1. SPIRONOLACTONE [Interacting]
     Active Substance: SPIRONOLACTONE
     Dosage: 25 MG, 1X/DAY
     Route: 048
     Dates: start: 202509
  2. BISOPROLOL [Interacting]
     Active Substance: BISOPROLOL
     Dosage: 5 MG, 1X/DAY
     Route: 048
     Dates: start: 202509
  3. DIGOXIN [Interacting]
     Active Substance: DIGOXIN
     Dosage: 0.25 MG, 1X/DAY
     Route: 048
     Dates: start: 202509
  4. VALSARTAN [Interacting]
     Active Substance: VALSARTAN
     Dosage: 160 MG, 1X/DAY
     Route: 048
     Dates: start: 202509
  5. AMLODIPINE [Interacting]
     Active Substance: AMLODIPINE BESYLATE
     Dosage: 10 MG, 1X/DAY
     Route: 048
     Dates: start: 202509

REACTIONS (4)
  - Bradycardia [Unknown]
  - Wrong product administered [Unknown]
  - Product prescribing error [Unknown]
  - Drug interaction [Unknown]

NARRATIVE: CASE EVENT DATE: 20250901
